FAERS Safety Report 5385439-2 (Version None)
Quarter: 2007Q3

REPORT INFORMATION
  Report Type: 
  Country: None (occurrence: None)
  Receive Date: 20070706
  Receipt Date: 20070706
  Transmission Date: 20080115
  Serious: No
  Sender: FDA-Public Use
  Company Number: None

PATIENT

DRUGS (1)
  1. DUAL ACTION CLEANSER [Suspect]
     Dates: start: 20070511

REACTIONS (2)
  - CONSTIPATION [None]
  - NAUSEA [None]
